FAERS Safety Report 24990538 (Version 1)
Quarter: 2025Q1

REPORT INFORMATION
  Report Type: Spontaneous
  Country: IN (occurrence: IN)
  Receive Date: 20250220
  Receipt Date: 20250220
  Transmission Date: 20250409
  Serious: Yes (Other)
  Sender: MYLAN
  Company Number: IN-MYLANLABS-2025M1014378

PATIENT
  Age: 51 Year
  Sex: Male

DRUGS (13)
  1. IMATINIB [Suspect]
     Active Substance: IMATINIB
     Indication: Chronic myeloid leukaemia
     Dosage: 400 MILLIGRAM, QD
     Route: 065
     Dates: start: 200505
  2. DASATINIB [Suspect]
     Active Substance: DASATINIB
     Indication: Chronic myeloid leukaemia
     Dosage: 100 MILLIGRAM, QD
     Route: 065
     Dates: start: 20140907
  3. DASATINIB [Suspect]
     Active Substance: DASATINIB
     Dosage: 50 MILLIGRAM, QD
     Route: 065
  4. DASATINIB [Suspect]
     Active Substance: DASATINIB
     Dosage: 70 MILLIGRAM, QD
     Route: 065
  5. VALPROATE SODIUM [Concomitant]
     Active Substance: VALPROATE SODIUM
     Indication: Anxiety
     Dosage: 750 MILLIGRAM, QD
     Route: 065
     Dates: start: 2011
  6. VALPROATE SODIUM [Concomitant]
     Active Substance: VALPROATE SODIUM
     Indication: Anger
  7. VALPROATE SODIUM [Concomitant]
     Active Substance: VALPROATE SODIUM
     Indication: Self-injurious ideation
  8. CLONAZEPAM [Concomitant]
     Active Substance: CLONAZEPAM
     Indication: Anxiety
     Dosage: 0.25 MILLIGRAM, HS (AT BEDTIME)
     Route: 065
     Dates: start: 2011
  9. CLONAZEPAM [Concomitant]
     Active Substance: CLONAZEPAM
     Indication: Anger
  10. CLONAZEPAM [Concomitant]
     Active Substance: CLONAZEPAM
     Indication: Self-injurious ideation
  11. RISPERIDONE [Concomitant]
     Active Substance: RISPERIDONE
     Indication: Anxiety
     Dosage: 1 MILLIGRAM, HS (AT BEDTIME)
     Route: 065
     Dates: start: 2011
  12. RISPERIDONE [Concomitant]
     Active Substance: RISPERIDONE
     Indication: Anger
  13. RISPERIDONE [Concomitant]
     Active Substance: RISPERIDONE
     Indication: Self-injurious ideation

REACTIONS (6)
  - Drug resistance [Unknown]
  - Treatment noncompliance [Unknown]
  - Dermatitis [Unknown]
  - Haemorrhoids [Unknown]
  - Madarosis [Not Recovered/Not Resolved]
  - Skin hypopigmentation [Not Recovered/Not Resolved]
